FAERS Safety Report 6436544-0 (Version None)
Quarter: 2009Q4

REPORT INFORMATION
  Report Type: 
  Country: None (occurrence: None)
  Receive Date: 20091111
  Receipt Date: 20091102
  Transmission Date: 20100525
  Serious: Yes (Other)
  Sender: FDA-Public Use
  Company Number: ES-TYCO HEALTHCARE/MALLINCKRODT-T200901982

PATIENT
  Age: 22 Year
  Sex: Female

DRUGS (9)
  1. TECHNESCAN [Interacting]
     Indication: BONE SCAN
     Dosage: UNK
     Route: 042
     Dates: start: 20040311, end: 20040311
  2. ULTRA-TECHNEKOW FM [Interacting]
     Indication: BONE SCAN
     Dosage: 22 MCI, SINGLE
     Route: 042
     Dates: start: 20040311, end: 20040311
  3. METHOTREXATE [Suspect]
  4. CAPTOPRIL [Concomitant]
  5. OMEPRAZOL                          /00661201/ [Concomitant]
  6. TETRAZEPAM [Concomitant]
  7. DEFLAZACORT [Concomitant]
  8. DIOSMIN W/HESPERIDIN [Concomitant]
  9. ALMAGATE [Concomitant]

REACTIONS (2)
  - BONE SCAN ABNORMAL [None]
  - DRUG INTERACTION [None]
